FAERS Safety Report 7782170-0 (Version None)
Quarter: 2011Q3

REPORT INFORMATION
  Report Type: 
  Country: None (occurrence: None)
  Receive Date: 20110927
  Receipt Date: 20110915
  Transmission Date: 20111222
  Serious: Yes (Hospitalization)
  Sender: FDA-Public Use
  Company Number: US-PFIZER INC-2011228791

PATIENT
  Age: 30 Year
  Sex: Male

DRUGS (4)
  1. EFAVIRENZ [Concomitant]
  2. IBUPROFEN [Suspect]
     Dosage: 96 GRAMS (1066 MG/KG) UNK
     Route: 048
  3. EMTRICITABINE [Concomitant]
  4. TENOFOVIR [Concomitant]

REACTIONS (5)
  - INTENTIONAL OVERDOSE [None]
  - METABOLIC ACIDOSIS [None]
  - RENAL FAILURE [None]
  - COMA [None]
  - DISTRIBUTIVE SHOCK [None]
